FAERS Safety Report 11128327 (Version 1)
Quarter: 2015Q2

REPORT INFORMATION
  Report Type: Spontaneous
  Country: US (occurrence: None)
  Receive Date: 20150520
  Receipt Date: 20150520
  Transmission Date: 20150821
  Serious: No
  Sender: FDA-Public Use
  Company Number: None

PATIENT
  Age: 19 Year
  Sex: Male
  Weight: 72.8 kg

DRUGS (5)
  1. NORVASC [Concomitant]
     Active Substance: AMLODIPINE BESYLATE
  2. LETAIRIS [Concomitant]
     Active Substance: AMBRISENTAN
  3. INSULIN [Concomitant]
     Active Substance: INSULIN NOS
  4. ORENITRAM [Suspect]
     Active Substance: TREPROSTINIL
  5. ADCIRCA [Concomitant]
     Active Substance: TADALAFIL

REACTIONS (9)
  - Blood glucose increased [None]
  - Urine output increased [None]
  - Vision blurred [None]
  - Headache [None]
  - Thirst [None]
  - Weight decreased [None]
  - Glycosylated haemoglobin increased [None]
  - Diarrhoea [None]
  - Gastrooesophageal reflux disease [None]

NARRATIVE: CASE EVENT DATE: 20150405
